FAERS Safety Report 21186828 (Version 1)
Quarter: 2022Q3

REPORT INFORMATION
  Report Type: Spontaneous
  Country: RU (occurrence: None)
  Receive Date: 20220808
  Receipt Date: 20220808
  Transmission Date: 20221027
  Serious: Yes (Hospitalization, Other)
  Sender: FDA-Public Use
  Company Number: 2022A280124

PATIENT
  Age: 58 Year
  Sex: Male

DRUGS (3)
  1. NAROPIN [Suspect]
     Active Substance: ROPIVACAINE HYDROCHLORIDE
     Indication: Epidural analgesia
     Dosage: UNK
     Route: 008
     Dates: start: 201811, end: 2018
  2. OMEPRAZOLE [Suspect]
     Active Substance: OMEPRAZOLE
     Indication: Supportive care
     Dosage: UNK
     Route: 065
     Dates: start: 201811, end: 2018
  3. OCTREOTIDE [Suspect]
     Active Substance: OCTREOTIDE
     Indication: Supportive care
     Dosage: UNK
     Route: 065
     Dates: start: 201811, end: 2018

REACTIONS (3)
  - Gastric haemorrhage [Recovered/Resolved]
  - Sepsis [Recovered/Resolved]
  - Fluid retention [Recovered/Resolved]

NARRATIVE: CASE EVENT DATE: 20181118
